FAERS Safety Report 9292416 (Version 1)
Quarter: 2013Q2

REPORT INFORMATION
  Report Type: Spontaneous
  Country: TR (occurrence: None)
  Receive Date: 20130513
  Receipt Date: 20130513
  Transmission Date: 20140414
  Serious: Yes (Other)
  Sender: FDA-Public Use
  Company Number: FK201301537

PATIENT
  Age: 64 Year
  Sex: Female

DRUGS (4)
  1. DOXORUBICIN [Suspect]
     Indication: PLASMA CELL MYELOMA
     Dosage: 9 MG/M2/DAY, INTRAVENOUS (NOT OTHERWISE SPECIFIED)?
     Route: 042
  2. VINCRISTINE [Suspect]
     Indication: PLASMA CELL MYELOMA
     Dosage: 0.4 MG/DAY, INTRAVENOUS (NOT OTHERWISE SPECIFIED)?
     Route: 042
  3. DEXAMETHASONE (DEXAMETHASONE) (DEXAMETHASONE) [Suspect]
     Indication: PLASMA CELL MYELOMA
  4. BORTEZOMIB (BORTEZOMIB) [Concomitant]

REACTIONS (4)
  - Pancreatitis acute [None]
  - Blood culture positive [None]
  - Staphylococcal infection [None]
  - Inflammation [None]
